FAERS Safety Report 13428557 (Version 1)
Quarter: 2017Q2

REPORT INFORMATION
  Report Type: Spontaneous
  Country: US (occurrence: US)
  Receive Date: 20170411
  Receipt Date: 20170411
  Transmission Date: 20170830
  Serious: No
  Sender: FDA-Public Use
  Company Number: US-SA-2016SA097471

PATIENT
  Sex: Male
  Weight: 99.79 kg

DRUGS (3)
  1. TIROSINT [Concomitant]
     Active Substance: LEVOTHYROXINE SODIUM
     Indication: THYROID DISORDER
     Dosage: STARTED ABOUT 2 MONTHS AGO, 1 GELCAP
     Route: 048
  2. GENOTROPIN [Concomitant]
     Active Substance: SOMATROPIN
     Indication: HYPOTHALAMO-PITUITARY DISORDER
     Dosage: MINIQUICK
     Route: 058
     Dates: start: 20160420
  3. CLOMIFENE CITRATE [Suspect]
     Active Substance: CLOMIPHENE
     Indication: BLOOD TESTOSTERONE DECREASED
     Dosage: START ADTE: 5-6 MONTHS AGO
     Route: 048

REACTIONS (3)
  - Asthenia [Unknown]
  - Anger [Unknown]
  - Off label use [Unknown]
